FAERS Safety Report 4368535-8 (Version None)
Quarter: 2004Q2

REPORT INFORMATION
  Report Type: 
  Country: None (occurrence: None)
  Receive Date: 20040602
  Receipt Date: 20040311
  Transmission Date: 20050107
  Serious: No
  Sender: FDA-Public Use
  Company Number: US-GLAXOSMITHKLINE-A0502386A

PATIENT
  Age: 13 Month
  Sex: Female

DRUGS (3)
  1. AUGMENTIN [Suspect]
     Indication: ACUTE SINUSITIS
     Dosage: 40MGK THREE TIMES PER DAY
     Route: 048
     Dates: start: 20040201
  2. MULTIVITAMIN + FLUORIDE [Concomitant]
  3. IRON [Concomitant]

REACTIONS (1)
  - TONGUE BLACK HAIRY [None]
